FAERS Safety Report 24287043 (Version 3)
Quarter: 2024Q4

REPORT INFORMATION
  Report Type: Spontaneous
  Country: JP (occurrence: JP)
  Receive Date: 20240905
  Receipt Date: 20241231
  Transmission Date: 20250115
  Serious: Yes (Other)
  Sender: MERCK
  Company Number: JP-MSD-2409JPN000206J

PATIENT
  Age: 66 Year
  Sex: Male

DRUGS (3)
  1. KEYTRUDA [Suspect]
     Active Substance: PEMBROLIZUMAB
     Indication: Gastric cancer
     Dosage: UNK
     Route: 041
     Dates: start: 201807
  2. GIMERACIL\OTERACIL\TEGAFUR [Concomitant]
     Active Substance: GIMERACIL\OTERACIL POTASSIUM\TEGAFUR
     Indication: Gastric cancer
     Dosage: UNK
     Route: 048
     Dates: start: 201807
  3. OXALIPLATIN [Concomitant]
     Active Substance: OXALIPLATIN
     Indication: Gastric cancer
     Dosage: 130 MILLIGRAM/SQ. METER, Q3W
     Route: 041
     Dates: start: 201807

REACTIONS (4)
  - Neuropathy peripheral [Unknown]
  - Tumour marker increased [Unknown]
  - Neutrophil count decreased [Unknown]
  - Lacrimation increased [Unknown]

NARRATIVE: CASE EVENT DATE: 20240101
